FAERS Safety Report 21922711 (Version 1)
Quarter: 2023Q1

REPORT INFORMATION
  Report Type: Spontaneous
  Country: CN (occurrence: CN)
  Receive Date: 20230128
  Receipt Date: 20230128
  Transmission Date: 20230417
  Serious: Yes (Hospitalization)
  Sender: FDA-Public Use
  Company Number: CN-Indoco-000379

PATIENT
  Age: 48 Year
  Sex: Female

DRUGS (1)
  1. OLANZAPINE [Suspect]
     Active Substance: OLANZAPINE
     Indication: Schizophrenia
     Dosage: REDUCED TO 15 THEN 10. AT THE FOLLOW-UP, TAKING THE MEDICATION REGULARLY
     Route: 048

REACTIONS (1)
  - Restless arm syndrome [Recovered/Resolved]
